FAERS Safety Report 7906626-2 (Version None)
Quarter: 2011Q4

REPORT INFORMATION
  Report Type: 
  Country: None (occurrence: None)
  Receive Date: 20111110
  Receipt Date: 20111108
  Transmission Date: 20120403
  Serious: No
  Sender: FDA-Public Use
  Company Number: US-B.I. PHARMACEUTICALS,INC./RIDGEFIELD-2011-BP-23130BP

PATIENT
  Sex: Female
  Weight: 91.63 kg

DRUGS (1)
  1. TRADJENTA [Suspect]
     Indication: TYPE 2 DIABETES MELLITUS
     Dosage: 5 MG
     Route: 048
     Dates: start: 20110819, end: 20110906

REACTIONS (4)
  - DIARRHOEA [None]
  - HYPERCHLORHYDRIA [None]
  - DYSPEPSIA [None]
  - ABDOMINAL PAIN [None]
